FAERS Safety Report 9919568 (Version 1)
Quarter: 2014Q1

REPORT INFORMATION
  Report Type: Report from Study
  Country: US (occurrence: US)
  Receive Date: 20140224
  Receipt Date: 20140224
  Transmission Date: 20141002
  Serious: Yes (Hospitalization)
  Sender: FDA-Public Use
  Company Number: PHHO2014US002400

PATIENT
  Age: 50 Year
  Sex: Male
  Weight: 128.8 kg

DRUGS (7)
  1. METHOTREXATE SODIUM [Suspect]
     Indication: PSORIASIS
     Dosage: 17.5 MG, QW
     Dates: start: 20131206
  2. BLINDED AIN457 [Suspect]
     Indication: PSORIASIS
     Dosage: CODE NOT BROKEN
     Route: 058
     Dates: start: 20121119, end: 20131021
  3. BLINDED NO TREATMENT RECEIVED [Suspect]
     Indication: PSORIASIS
     Dosage: CODE NOT BROKEN
     Route: 058
     Dates: start: 20121119, end: 20131021
  4. BLINDED PLACEBO [Suspect]
     Indication: PSORIASIS
     Dosage: CODE NOT BROKEN
     Route: 058
     Dates: start: 20121119, end: 20131021
  5. APO-FOLIC ACID [Concomitant]
     Indication: PSORIASIS
     Dosage: 1 MG, QD
     Dates: start: 20131206
  6. LISINOPRIL [Concomitant]
     Indication: HYPERTENSION
     Dosage: 10 MG, QD
     Dates: start: 20130925
  7. VITAMIN D3 [Concomitant]
     Indication: PSORIASIS
     Dosage: 10000 UNIT, UNK
     Dates: start: 20131206

REACTIONS (1)
  - Vertigo [Recovered/Resolved]
